FAERS Safety Report 9445591 (Version 5)
Quarter: 2014Q1

REPORT INFORMATION
  Report Type: Report from Study
  Country: HU (occurrence: HU)
  Receive Date: 20130807
  Receipt Date: 20140328
  Transmission Date: 20141002
  Serious: Yes (Death, Hospitalization, Other)
  Sender: FDA-Public Use
  Company Number: HU-PFIZER INC-2013221976

PATIENT
  Age: 45 Year
  Sex: Female
  Weight: 45.2 kg

DRUGS (7)
  1. TOFACITINIB CITRATE [Suspect]
     Indication: PSORIASIS
     Dosage: 10 MG, 2X/DAY
     Route: 048
     Dates: start: 20110504, end: 20120124
  2. TOFACITINIB CITRATE [Suspect]
     Dosage: 5 MG, 2X/DAY
     Route: 048
     Dates: start: 20120125, end: 20120502
  3. TOFACITINIB CITRATE [Suspect]
     Dosage: 10 MG, 2X/DAY
     Route: 048
     Dates: start: 20120503, end: 20130725
  4. SERTRALINE [Concomitant]
     Indication: DEPRESSION
     Dosage: UNK
     Dates: start: 2007
  5. RIVOTRIL [Concomitant]
     Indication: DEPRESSION
     Dosage: UNK
     Dates: start: 200608
  6. MIZAPIN [Concomitant]
     Indication: DEPRESSION
     Dosage: UNK
     Dates: start: 2007
  7. NOLPAZA [Concomitant]
     Indication: IRRITABLE BOWEL SYNDROME
     Dosage: UNK
     Dates: start: 200908

REACTIONS (2)
  - Lung cancer metastatic [Fatal]
  - Metastases to lymph nodes [Fatal]
